FAERS Safety Report 23410503 (Version 1)
Quarter: 2024Q1

REPORT INFORMATION
  Report Type: Spontaneous
  Country: AU (occurrence: AU)
  Receive Date: 20240117
  Receipt Date: 20240117
  Transmission Date: 20240410
  Serious: Yes (Other)
  Sender: FDA-Public Use
  Company Number: AU-TAKEDA-2024TUS004199

PATIENT
  Age: 51 Year
  Sex: Female

DRUGS (5)
  1. PONATINIB [Suspect]
     Active Substance: PONATINIB
     Indication: Chronic myeloid leukaemia
     Dosage: 40 MILLIGRAM
     Route: 065
     Dates: start: 202110
  2. PONATINIB [Suspect]
     Active Substance: PONATINIB
     Dosage: 45 MILLIGRAM, QD
     Route: 065
  3. IMATINIB [Suspect]
     Active Substance: IMATINIB
     Indication: Chronic myeloid leukaemia
     Dosage: UNK
     Route: 065
     Dates: start: 20160919, end: 202106
  4. DASATINIB [Suspect]
     Active Substance: DASATINIB
     Indication: Product used for unknown indication
     Dosage: 140 MILLIGRAM, BID
     Route: 065
     Dates: start: 20210208, end: 20211025
  5. NILOTINIB [Suspect]
     Active Substance: NILOTINIB
     Indication: Product used for unknown indication
     Dosage: UNK
     Route: 065
     Dates: end: 202106

REACTIONS (5)
  - Blast cell crisis [Unknown]
  - Chronic myeloid leukaemia recurrent [Unknown]
  - Cytogenetic analysis abnormal [Unknown]
  - Muscle spasms [Unknown]
  - Splenomegaly [Unknown]
